FAERS Safety Report 25552562 (Version 1)
Quarter: 2025Q3

REPORT INFORMATION
  Report Type: Report from Study
  Country: EU (occurrence: EU)
  Receive Date: 20250715
  Receipt Date: 20250715
  Transmission Date: 20251020
  Serious: Yes (Hospitalization)
  Sender: ABBVIE
  Company Number: EU-ABBVIE-6369080

PATIENT
  Age: 74 Year
  Sex: Female

DRUGS (1)
  1. RINVOQ [Suspect]
     Active Substance: UPADACITINIB
     Indication: Axial spondyloarthritis
     Route: 048
     Dates: start: 20210921

REACTIONS (5)
  - Surgery [Recovering/Resolving]
  - Pneumonia [Unknown]
  - Gastrointestinal disorder [Recovering/Resolving]
  - Medical induction of coma [Unknown]
  - Procedural complication [Recovering/Resolving]

NARRATIVE: CASE EVENT DATE: 20250601
